FAERS Safety Report 8426525-X (Version None)
Quarter: 2012Q2

REPORT INFORMATION
  Report Type: 
  Country: None (occurrence: None)
  Receive Date: 20120611
  Receipt Date: 20120606
  Transmission Date: 20120825
  Serious: Yes (Other)
  Sender: FDA-Public Use
  Company Number: CH-PFIZER INC-2012135720

PATIENT
  Age: 37 Year
  Sex: Female

DRUGS (2)
  1. ESCITALOPRAM [Suspect]
     Dosage: 2 DF, 1X/DAY
     Dates: end: 20110705
  2. VIBRAMYCIN [Suspect]
     Dosage: 50 MG, 1X/DAY
     Dates: start: 20110425, end: 20110617

REACTIONS (2)
  - FAILED FORCEPS DELIVERY [None]
  - CAESAREAN SECTION [None]
